FAERS Safety Report 12336225 (Version 1)
Quarter: 2016Q2

REPORT INFORMATION
  Report Type: Spontaneous
  Country: US (occurrence: None)
  Receive Date: 20160504
  Receipt Date: 20160504
  Transmission Date: 20160815
  Serious: No
  Sender: FDA-Public Use
  Company Number: None

PATIENT
  Age: 44 Year
  Sex: Female

DRUGS (14)
  1. ATENOLOL. [Concomitant]
     Active Substance: ATENOLOL
  2. TRAZODONE [Concomitant]
     Active Substance: TRAZODONE HYDROCHLORIDE
  3. GLATOPA [Suspect]
     Active Substance: GLATIRAMER ACETATE
     Indication: MULTIPLE SCLEROSIS
     Route: 048
     Dates: start: 201604
  4. LANTUS [Concomitant]
     Active Substance: INSULIN GLARGINE
  5. METFORMIN [Concomitant]
     Active Substance: METFORMIN HYDROCHLORIDE
  6. LORATADINE. [Concomitant]
     Active Substance: LORATADINE
  7. GLUTERA [Concomitant]
  8. ATORVASTATIN [Concomitant]
     Active Substance: ATORVASTATIN
  9. OMEPRAZOLE. [Concomitant]
     Active Substance: OMEPRAZOLE
  10. WARFARIN [Concomitant]
     Active Substance: WARFARIN
  11. GLIPIZIDE. [Concomitant]
     Active Substance: GLIPIZIDE
  12. LISINOPRIL. [Concomitant]
     Active Substance: LISINOPRIL
  13. LAMICTAL [Concomitant]
     Active Substance: LAMOTRIGINE
  14. VITAMIN D3 [Concomitant]
     Active Substance: CHOLECALCIFEROL

REACTIONS (3)
  - Cough [None]
  - Dysphonia [None]
  - Injection site pain [None]

NARRATIVE: CASE EVENT DATE: 201604
